FAERS Safety Report 5325827-3 (Version None)
Quarter: 2007Q2

REPORT INFORMATION
  Report Type: 
  Country: None (occurrence: None)
  Receive Date: 20070510
  Receipt Date: 20070425
  Transmission Date: 20071010
  Serious: Yes (Hospitalization)
  Sender: FDA-Public Use
  Company Number: SPV1-2007-02465

PATIENT
  Age: 57 Year
  Sex: Male

DRUGS (2)
  1. PENTASA [Suspect]
     Dosage: 3 G DAILY, ORAL
     Route: 048
     Dates: start: 19640101
  2. FERROUS GLUCONATE [Concomitant]

REACTIONS (1)
  - NEPHROLITHIASIS [None]
